FAERS Safety Report 5189765-1 (Version None)
Quarter: 2006Q4

REPORT INFORMATION
  Report Type: 
  Country: None (occurrence: None)
  Receive Date: 20061215
  Receipt Date: 20061129
  Transmission Date: 20070319
  Serious: Yes (Other)
  Sender: FDA-Public Use
  Company Number: 2006143305

PATIENT
  Age: 75 Year
  Sex: Female
  Weight: 54.2 kg

DRUGS (8)
  1. XALATAN [Suspect]
     Indication: INTRAOCULAR PRESSURE INCREASED
     Dosage: 1 DROP IN EACH EYE (1 IN 1 D), OPHTHALMIC
     Route: 047
     Dates: start: 20060401, end: 20061101
  2. BRICANYL [Concomitant]
  3. SLO-PHYLLIN                              (AMINOPHYLLINE) [Concomitant]
  4. MUCODYNE                        (CARBOCISTEINE) [Concomitant]
  5. SPIRIVA [Concomitant]
  6. LEVOTHYROXINE SODIUM [Concomitant]
  7. ASPIRIN [Concomitant]
  8. SERETIDE                    (FLUTICASONE PROPIONATE, SALMETEROL XINAFO [Concomitant]

REACTIONS (2)
  - DYSPNOEA [None]
  - PALPITATIONS [None]
